APPROVED DRUG PRODUCT: VEVYE
Active Ingredient: CYCLOSPORINE
Strength: 0.1%
Dosage Form/Route: SOLUTION;OPHTHALMIC
Application: N217469 | Product #001
Applicant: HARROW EYE LLC
Approved: May 30, 2023 | RLD: Yes | RS: Yes | Type: RX

PATENTS:
Patent 11413323 | Expires: Oct 11, 2039
Patent 11154513 | Expires: Nov 20, 2038
Patent 12496326 | Expires: Sep 29, 2036
Patent 12059449 | Expires: Apr 1, 2042
Patent 10813976 | Expires: Sep 22, 2037
Patent 8614178 | Expires: Dec 13, 2030

EXCLUSIVITY:
Code: NP | Date: May 30, 2026